FAERS Safety Report 9646724 (Version 1)
Quarter: 2013Q4

REPORT INFORMATION
  Report Type: Spontaneous
  Country: US (occurrence: US)
  Receive Date: 20131027
  Receipt Date: 20131027
  Transmission Date: 20140711
  Serious: No
  Sender: FDA-Public Use
  Company Number: US-PURDUE-USA-2013-0105333

PATIENT
  Sex: Female
  Weight: 58.96 kg

DRUGS (2)
  1. OXYCONTIN TABLETS [Suspect]
     Indication: NECK PAIN
     Dosage: 80 MG, Q8H
     Route: 048
  2. OXYCODONE HYDROCHLORIDE (SIMILAR TO NDA 20-553) [Suspect]
     Indication: NECK PAIN
     Dosage: 15 MG, Q6H PRN
     Route: 048
     Dates: start: 20100406

REACTIONS (2)
  - Swelling face [Unknown]
  - Sinus disorder [Unknown]
